FAERS Safety Report 21684458 (Version 1)
Quarter: 2022Q4

REPORT INFORMATION
  Report Type: Spontaneous
  Country: GB (occurrence: GB)
  Receive Date: 20221205
  Receipt Date: 20221205
  Transmission Date: 20230113
  Serious: Yes (Other)
  Sender: FDA-Public Use
  Company Number: None

PATIENT
  Sex: Female
  Weight: 67 kg

DRUGS (12)
  1. BIMATOPROST\TIMOLOL [Suspect]
     Active Substance: BIMATOPROST\TIMOLOL
     Indication: Product used for unknown indication
     Dosage: 0.3MG/ML / 5MG/ML
     Dates: start: 20221014
  2. APRACLONIDINE HYDROCHLORIDE [Concomitant]
     Active Substance: APRACLONIDINE HYDROCHLORIDE
     Dosage: 1 GTT, PRN
     Dates: start: 20220923, end: 20221021
  3. ATORVASTATIN [Concomitant]
     Active Substance: ATORVASTATIN
     Dosage: 1 DF, QHS
     Dates: start: 20170718
  4. DICLOFENAC DIETHYLAMINE [Concomitant]
     Active Substance: DICLOFENAC DIETHYLAMINE
     Dosage: UNK, PRN
     Dates: start: 20220202
  5. HYALURONATE SODIUM [Concomitant]
     Active Substance: HYALURONATE SODIUM
     Dosage: 1 DF, TID
     Dates: start: 20221115
  6. LATANOPROST [Concomitant]
     Active Substance: LATANOPROST
     Dosage: 2 GTT, QHS
     Dates: start: 20181016
  7. METHENAMINE HIPPURATE [Concomitant]
     Active Substance: METHENAMINE HIPPURATE
     Dosage: 1 DF, BID
     Dates: start: 20210419
  8. MIRABEGRON [Concomitant]
     Active Substance: MIRABEGRON
     Dosage: 1 DF, QD
     Dates: start: 20170718
  9. LATANOPROST [Concomitant]
     Active Substance: LATANOPROST
     Dosage: 1 GTT, QD
     Dates: start: 20221102
  10. OMEPRAZOLE [Concomitant]
     Active Substance: OMEPRAZOLE
     Dosage: 1 DF, QD
     Dates: start: 20170718
  11. ACETAMINOPHEN [Concomitant]
     Active Substance: ACETAMINOPHEN
     Dosage: ONE TO TWO TABLETS TO BE TAKEN EVERY FOUR TO SI...
     Dates: start: 20170718
  12. VAGIRUX [Concomitant]
     Dosage: ONE THREE TIMES WEEKLY
     Dates: start: 20210419

REACTIONS (3)
  - Eye swelling [Recovered/Resolved]
  - Eye irritation [Recovered/Resolved]
  - Ocular hyperaemia [Recovered/Resolved]

NARRATIVE: CASE EVENT DATE: 20221123
